FAERS Safety Report 15907913 (Version 2)
Quarter: 2019Q1

REPORT INFORMATION
  Report Type: Spontaneous
  Country: FR (occurrence: FR)
  Receive Date: 20190204
  Receipt Date: 20190221
  Transmission Date: 20190417
  Serious: Yes (Life-Threatening, Other)
  Sender: FDA-Public Use
  Company Number: PHHY2019FR024168

PATIENT
  Sex: Female

DRUGS (23)
  1. DIGOXIN. [Suspect]
     Active Substance: DIGOXIN
     Indication: CARDIAC TAMPONADE
  2. PREDNISONE. [Suspect]
     Active Substance: PREDNISONE
     Indication: CONGESTIVE CARDIOMYOPATHY
  3. DIGOXIN. [Suspect]
     Active Substance: DIGOXIN
     Indication: SYSTEMIC SCLERODERMA
  4. DIGOXIN. [Suspect]
     Active Substance: DIGOXIN
     Indication: PERICARDITIS
  5. DIGOXIN. [Suspect]
     Active Substance: DIGOXIN
     Indication: SYSTOLIC DYSFUNCTION
  6. DIGOXIN. [Suspect]
     Active Substance: DIGOXIN
     Indication: ARRHYTHMIA
  7. PREDNISONE. [Suspect]
     Active Substance: PREDNISONE
     Indication: MYOCARDIAL FIBROSIS
     Dosage: 0.5 MG/KG DAILY; WITH RAPID DECREASE; LATER ADMINISTERED AS 5 MG/DAY, QD
     Route: 065
     Dates: start: 201408
  8. PREDNISONE. [Suspect]
     Active Substance: PREDNISONE
     Indication: ATRIAL FIBRILLATION
     Dosage: 1 MG/KG, QD
     Route: 065
     Dates: start: 201412
  9. PREDNISONE. [Suspect]
     Active Substance: PREDNISONE
     Indication: SYSTEMIC SCLERODERMA
  10. DIGOXIN. [Suspect]
     Active Substance: DIGOXIN
     Indication: SYSTEMIC SCLERODERMA
  11. PREDNISONE. [Suspect]
     Active Substance: PREDNISONE
     Indication: PERICARDIAL EFFUSION
  12. PREDNISONE. [Suspect]
     Active Substance: PREDNISONE
     Indication: PERICARDITIS
  13. COLCHICINE. [Suspect]
     Active Substance: COLCHICINE
     Indication: PERICARDIAL EFFUSION
     Dosage: 1 MG, QD
     Route: 065
     Dates: start: 201408
  14. RITUXIMAB. [Suspect]
     Active Substance: RITUXIMAB
     Indication: SYSTEMIC SCLERODERMA
     Route: 065
  15. PREDNISONE. [Suspect]
     Active Substance: PREDNISONE
     Indication: ARRHYTHMIA
  16. PREDNISONE. [Suspect]
     Active Substance: PREDNISONE
     Indication: SYSTOLIC DYSFUNCTION
  17. METHOTREXATE. [Suspect]
     Active Substance: METHOTREXATE
     Indication: SYSTEMIC SCLERODERMA
     Dosage: 15 MG, QW
     Route: 065
  18. DIGOXIN. [Suspect]
     Active Substance: DIGOXIN
     Indication: PERICARDIAL EFFUSION
  19. DIGOXIN. [Suspect]
     Active Substance: DIGOXIN
     Indication: MYOCARDIAL FIBROSIS
  20. COLCHICINE. [Suspect]
     Active Substance: COLCHICINE
     Indication: SYSTEMIC SCLERODERMA
  21. DIGOXIN. [Suspect]
     Active Substance: DIGOXIN
     Indication: ATRIAL FIBRILLATION
     Dosage: UNK
     Route: 065
  22. DIGOXIN. [Suspect]
     Active Substance: DIGOXIN
     Indication: CONGESTIVE CARDIOMYOPATHY
  23. PREDNISONE. [Suspect]
     Active Substance: PREDNISONE
     Indication: CARDIAC TAMPONADE
     Dosage: 5 MG LATER ADMINISTERED AS 1 MG/KG/DAY, QD
     Route: 065

REACTIONS (3)
  - Drug ineffective [Recovered/Resolved]
  - Staphylococcal sepsis [Unknown]
  - Product use in unapproved indication [Unknown]

NARRATIVE: CASE EVENT DATE: 2014
